FAERS Safety Report 8044129-8 (Version None)
Quarter: 2012Q1

REPORT INFORMATION
  Report Type: 
  Country: None (occurrence: None)
  Receive Date: 20120113
  Receipt Date: 20120109
  Transmission Date: 20120608
  Serious: Yes (Death)
  Sender: FDA-Public Use
  Company Number: PHHY2011FR90749

PATIENT
  Sex: Female

DRUGS (2)
  1. DESFERAL [Suspect]
     Dosage: 4 G, TWICE PER WEEK
     Route: 058
     Dates: start: 20110228
  2. EXJADE [Suspect]
     Indication: IRON OVERLOAD
     Dates: end: 20110228

REACTIONS (1)
  - DEATH [None]
